FAERS Safety Report 4283880-2 (Version None)
Quarter: 2004Q1

REPORT INFORMATION
  Report Type: 
  Country: None (occurrence: None)
  Receive Date: 20040130
  Receipt Date: 20040116
  Transmission Date: 20041129
  Serious: Yes (Death, Hospitalization)
  Sender: FDA-Public Use
  Company Number: US-SHR-03-016547

PATIENT
  Age: 35 Year
  Sex: Female
  Weight: 59.4 kg

DRUGS (5)
  1. BETASERON [Suspect]
     Indication: MULTIPLE SCLEROSIS
     Dosage: SUBCUTANEOUS
     Route: 058
     Dates: start: 19910901, end: 19940801
  2. BETASERON [Suspect]
     Indication: MULTIPLE SCLEROSIS
     Dosage: SUBCUTANEOUS
     Route: 058
     Dates: start: 20000101, end: 20031024
  3. CYTOXAN [Suspect]
     Indication: MULTIPLE SCLEROSIS
     Dosage: 125 MG, 1X/WEEK, ORAL
     Route: 048
     Dates: start: 19940901, end: 20001201
  4. CYTOXAN [Suspect]
     Dosage: 1900 MG, 1X/MONTH, INTRAVENOUS
     Route: 042
     Dates: start: 19910901, end: 19940801
  5. MITOXANTRONE [Concomitant]

REACTIONS (3)
  - ACUTE RESPIRATORY FAILURE [None]
  - COUGH [None]
  - PULMONARY FIBROSIS [None]
